FAERS Safety Report 8779381 (Version 2)
Quarter: 2012Q4

REPORT INFORMATION
  Report Type: 
  Country: US (occurrence: US)
  Receive Date: 20120912
  Receipt Date: 20121010
  Transmission Date: 20130627
  Serious: Yes (Death, Other)
  Sender: FDA-Public Use
  Company Number: US-ASTELLAS-2012US007690

PATIENT
  Age: 32 Year
  Sex: Male
  Weight: 85 kg

DRUGS (14)
  1. PROGRAF [Suspect]
     Indication: LUNG TRANSPLANT
     Dosage: 1.5 mg, UID/QD
     Route: 048
     Dates: start: 20090812
  2. PROGRAF [Suspect]
     Dosage: 2 mg, bid
     Route: 048
     Dates: end: 20120609
  3. VALCYTE [Concomitant]
     Indication: ANTIVIRAL PROPHYLAXIS
     Dosage: 450 mg, bid
     Route: 048
  4. PREDNISONE [Concomitant]
     Indication: LUNG TRANSPLANT
     Dosage: 10 mg, UID/QD
     Route: 048
  5. AZATHIOPRINE [Concomitant]
     Indication: LUNG TRANSPLANT
     Dosage: 50 mg, UID/QD
     Route: 048
  6. BACTRIM [Concomitant]
     Indication: INFECTION PROPHYLAXIS
     Dosage: 800mg/160mg every M, W, F
     Route: 048
  7. NEXIUM                             /01479302/ [Concomitant]
     Indication: GASTROOESOPHAGEAL REFLUX DISEASE
     Dosage: 40 mg, UID/QD
     Route: 048
  8. OSCAL D                            /00944201/ [Concomitant]
     Indication: PROPHYLAXIS
     Dosage: 500 mg, tid
     Route: 048
  9. VITAMINS                           /90003601/ [Concomitant]
     Indication: MEDICAL DIET
     Dosage: 1 DF, UID/QD
     Route: 048
  10. LANTUS [Concomitant]
     Indication: DIABETES MELLITUS
     Dosage: 50 U, UID/QD
     Route: 065
  11. NOVOLOG [Concomitant]
     Indication: DIABETES MELLITUS
     Dosage: Sliding scale
     Route: 065
  12. MUCOMYST                           /00082801/ [Concomitant]
     Indication: INCREASED VISCOSITY OF BRONCHIAL SECRETION
     Dosage: 2 ml, q 12 hrs prn
     Route: 055
  13. ALBUTEROL                          /00139501/ [Concomitant]
     Indication: ASTHMA
     Dosage: 3 ml, q 4-6 hrs prn
     Route: 055
  14. ALBUTEROL                          /00139501/ [Concomitant]
     Indication: CHRONIC OBSTRUCTIVE PULMONARY DISEASE

REACTIONS (7)
  - Off label use [Unknown]
  - Organising pneumonia [Fatal]
  - Pulmonary fibrosis [Unknown]
  - Cholecystectomy [Unknown]
  - Treatment noncompliance [Unknown]
  - Binge drinking [Unknown]
  - Depression [Unknown]
